FAERS Safety Report 9861242 (Version 1)
Quarter: 2014Q1

REPORT INFORMATION
  Report Type: Spontaneous
  Country: US (occurrence: None)
  Receive Date: 20140131
  Receipt Date: 20140131
  Transmission Date: 20141002
  Serious: No
  Sender: FDA-Public Use
  Company Number: None

PATIENT
  Age: 61 None
  Sex: Female
  Weight: 63.5 kg

DRUGS (9)
  1. TECFIDERA [Suspect]
     Indication: INVESTIGATION
     Dosage: 120 MG PER DAY FOR 14 DAYS 240 FOR NEXT 6 WEEKS 2 X DAILY ORAL
     Route: 048
     Dates: start: 20130918, end: 20131112
  2. MULTI-VIT D 3 [Concomitant]
  3. COQ10 [Concomitant]
  4. GARLIC [Concomitant]
  5. CALCIUM [Concomitant]
  6. VITAMIN E [Concomitant]
  7. SULPHOROPHASE [Concomitant]
  8. FOLIC ACID [Concomitant]
  9. FISH OIL [Concomitant]

REACTIONS (1)
  - Blepharospasm [None]
